APPROVED DRUG PRODUCT: CILOSTAZOL
Active Ingredient: CILOSTAZOL
Strength: 100MG
Dosage Form/Route: TABLET;ORAL
Application: A077028 | Product #002
Applicant: ACTAVIS ELIZABETH LLC
Approved: Nov 26, 2004 | RLD: No | RS: No | Type: DISCN